FAERS Safety Report 24951939 (Version 1)
Quarter: 2025Q1

REPORT INFORMATION
  Report Type: Spontaneous
  Country: US (occurrence: US)
  Receive Date: 20250210
  Receipt Date: 20250210
  Transmission Date: 20250409
  Serious: No
  Sender: NOVARTIS
  Company Number: US-002147023-NVSC2025US020241

PATIENT
  Sex: Female

DRUGS (1)
  1. INCLISIRAN [Suspect]
     Active Substance: INCLISIRAN
     Indication: Product used for unknown indication
     Route: 065
     Dates: start: 20240101, end: 20241201

REACTIONS (1)
  - Injection site rash [Recovering/Resolving]

NARRATIVE: CASE EVENT DATE: 20241101
